FAERS Safety Report 5079597-7 (Version None)
Quarter: 2006Q3

REPORT INFORMATION
  Report Type: 
  Country: None (occurrence: None)
  Receive Date: 20060808
  Receipt Date: 20060719
  Transmission Date: 20061208
  Serious: Yes (Hospitalization)
  Sender: FDA-Public Use
  Company Number: US200607003595

PATIENT
  Age: 72 Year
  Sex: Male

DRUGS (7)
  1. HUMALOG PEN [Suspect]
     Indication: DIABETES MELLITUS
     Dosage: SEE IMAGE
     Dates: start: 20060217
  2. HUMALOG PEN [Suspect]
     Indication: DIABETES MELLITUS
     Dosage: SEE IMAGE
     Dates: start: 20060217
  3. HUMALOG PEN [Suspect]
     Indication: DIABETES MELLITUS
     Dosage: SEE IMAGE
     Dates: start: 20060217
  4. GLUCOPHAGE ^UNS^ (METFORMIN HYDROCHLORIDE) [Concomitant]
  5. ASPIRIN [Concomitant]
  6. LANTUS [Concomitant]
  7. LIPITOR [Concomitant]

REACTIONS (4)
  - BLOOD GLUCOSE FLUCTUATION [None]
  - PHARMACEUTICAL PRODUCT COMPLAINT [None]
  - SCIATICA [None]
  - STRESS [None]
